FAERS Safety Report 6685808-4 (Version None)
Quarter: 2010Q2

REPORT INFORMATION
  Report Type: 
  Country: None (occurrence: None)
  Receive Date: 20100415
  Receipt Date: 20100415
  Transmission Date: 20101027
  Serious: No
  Sender: FDA-Public Use
  Company Number: None

PATIENT
  Sex: Female
  Weight: 82.6 kg

DRUGS (2)
  1. HERCEPTIN [Suspect]
     Dosage: 168 MG
     Dates: start: 20090921, end: 20100117
  2. NOVOLIN N [Concomitant]

REACTIONS (3)
  - COUGH [None]
  - DYSPNOEA [None]
  - ORTHOPNOEA [None]
